FAERS Safety Report 5372372-5 (Version None)
Quarter: 2007Q2

REPORT INFORMATION
  Report Type: 
  Country: None (occurrence: None)
  Receive Date: 20070619
  Receipt Date: 20070612
  Transmission Date: 20071010
  Serious: No
  Sender: FDA-Public Use
  Company Number: 2007US001247

PATIENT
  Age: 89 Year
  Sex: Female

DRUGS (4)
  1. VESICARE [Suspect]
     Indication: URINARY INCONTINENCE
     Dosage: 10 MG, UID/QD, ORAL
     Route: 048
  2. INDERAL [Concomitant]
  3. ARICEPT [Concomitant]
  4. ATENOLOL [Concomitant]

REACTIONS (1)
  - TONGUE BLACK HAIRY [None]
